FAERS Safety Report 11311204 (Version 1)
Quarter: 2015Q3

REPORT INFORMATION
  Report Type: Report from Study
  Country: FI (occurrence: FI)
  Receive Date: 20150727
  Receipt Date: 20150727
  Transmission Date: 20151125
  Serious: Yes (Hospitalization, Other)
  Sender: FDA-Public Use
  Company Number: FI-ROCHE-1611033

PATIENT

DRUGS (4)
  1. TOCILIZUMAB [Suspect]
     Active Substance: TOCILIZUMAB
     Indication: UVEITIS
  2. RITUXIMAB [Suspect]
     Active Substance: RITUXIMAB
     Indication: UVEITIS
  3. RITUXIMAB [Suspect]
     Active Substance: RITUXIMAB
     Indication: JUVENILE IDIOPATHIC ARTHRITIS
     Route: 065
  4. TOCILIZUMAB [Suspect]
     Active Substance: TOCILIZUMAB
     Indication: JUVENILE IDIOPATHIC ARTHRITIS
     Route: 065

REACTIONS (27)
  - Wound infection [Unknown]
  - Influenza [Unknown]
  - Alanine aminotransferase increased [Unknown]
  - Osteoporosis [Unknown]
  - Otitis media [Unknown]
  - Sinusitis [Unknown]
  - Uveitis [Unknown]
  - Vomiting [Unknown]
  - Conjunctivitis [Unknown]
  - Eczema [Unknown]
  - Skin papilloma [Unknown]
  - Sepsis [Unknown]
  - Insulin resistance [Unknown]
  - Pyrexia [Unknown]
  - Tonsillitis [Unknown]
  - Gastroenteritis [Unknown]
  - Tension [Unknown]
  - Weight increased [Unknown]
  - Juvenile idiopathic arthritis [Unknown]
  - Upper respiratory tract infection [Unknown]
  - Nausea [Unknown]
  - Varicella [Unknown]
  - Hypersensitivity [Unknown]
  - Headache [Unknown]
  - Abdominal pain upper [Unknown]
  - Myalgia [Unknown]
  - Cough [Unknown]
